FAERS Safety Report 9346654 (Version 2)
Quarter: 2013Q4

REPORT INFORMATION
  Report Type: Spontaneous
  Country: US (occurrence: US)
  Receive Date: 20130613
  Receipt Date: 20131002
  Transmission Date: 20140711
  Serious: No
  Sender: FDA-Public Use
  Company Number: US-PFIZER INC-2013175363

PATIENT
  Sex: Female

DRUGS (5)
  1. ADVIL [Suspect]
     Indication: PAIN
     Dosage: UNK, TWO TIMES A DAY
     Route: 048
  2. ADVIL [Suspect]
     Indication: BACK PAIN
  3. ADVIL [Suspect]
     Indication: PAIN IN EXTREMITY
  4. ALEVE [Suspect]
     Indication: BACK PAIN
     Dosage: UNK
     Route: 048
  5. ALEVE [Suspect]
     Indication: PAIN IN EXTREMITY

REACTIONS (3)
  - Drug ineffective [Unknown]
  - Back disorder [Unknown]
  - Abdominal pain upper [Unknown]
